FAERS Safety Report 4630440-7 (Version None)
Quarter: 2005Q2

REPORT INFORMATION
  Report Type: 
  Country: None (occurrence: None)
  Receive Date: 20050406
  Receipt Date: 20050321
  Transmission Date: 20051028
  Serious: Yes (Hospitalization, Other)
  Sender: FDA-Public Use
  Company Number: USA050290379

PATIENT
  Age: 72 Year
  Sex: Female
  Weight: 60 kg

DRUGS (11)
  1. FORTEO [Suspect]
     Indication: OSTEOPOROSIS
     Dates: start: 20040401
  2. ZYPREXA [Suspect]
     Indication: DEPRESSION
  3. DIAZPEM [Concomitant]
  4. TYLENOL (CAPLET) [Concomitant]
  5. ASPIRIN (ACETYLSALIYCLIC ACID) [Concomitant]
  6. LEXAPRO [Concomitant]
  7. ZOCOR (SIMVASTATIN RATIOPHARM) [Concomitant]
  8. WELLBUTRIN [Concomitant]
  9. VITAMINS [Concomitant]
  10. TRAZADONE [Concomitant]
  11. OXYCONTIN [Concomitant]

REACTIONS (4)
  - PANCREATITIS [None]
  - PHARMACEUTICAL PRODUCT COMPLAINT [None]
  - PNEUMONIA [None]
  - WHITE BLOOD CELL COUNT INCREASED [None]
